FAERS Safety Report 23797438 (Version 1)
Quarter: 2024Q2

REPORT INFORMATION
  Report Type: Spontaneous
  Country: FR (occurrence: FR)
  Receive Date: 20240430
  Receipt Date: 20240430
  Transmission Date: 20240715
  Serious: Yes (Other)
  Sender: FDA-Public Use
  Company Number: FR-AFSSAPS-DJ2024000519

PATIENT
  Age: 44 Year
  Sex: Female

DRUGS (2)
  1. AMOXICILLIN [Suspect]
     Active Substance: AMOXICILLIN
     Indication: Pyrexia
     Dosage: 3 GRAM, ONCE A DAY (3GRX1/J)
     Route: 048
     Dates: start: 20240218, end: 20240222
  2. METHOTREXATE [Suspect]
     Active Substance: METHOTREXATE
     Indication: Ectopic pregnancy
     Dosage: 68 MILLIGRAM, 1 TOTAL
     Route: 030
     Dates: start: 20240219, end: 20240219

REACTIONS (2)
  - Mixed liver injury [Recovering/Resolving]
  - Maternal exposure during pregnancy [Recovered/Resolved]

NARRATIVE: CASE EVENT DATE: 20240219
